FAERS Safety Report 4272634-9 (Version None)
Quarter: 2004Q1

REPORT INFORMATION
  Report Type: 
  Country: None (occurrence: None)
  Receive Date: 20040114
  Receipt Date: 20040114
  Transmission Date: 20041129
  Serious: Yes (Hospitalization)
  Sender: FDA-Public Use
  Company Number: None

PATIENT
  Age: 73 Year
  Sex: Female
  Weight: 49.8957 kg

DRUGS (12)
  1. LANOXIN [Suspect]
     Indication: ATRIAL FIBRILLATION
     Dosage: 0.125 MG QD PO
     Route: 048
  2. FOSAMAX [Concomitant]
  3. ASPIRIN [Concomitant]
  4. DILTIAZEM [Concomitant]
  5. LISINOPRIL [Concomitant]
  6. LEXAPRO [Concomitant]
  7. PLAVIX [Concomitant]
  8. PREDNISONE [Concomitant]
  9. VALIUM [Concomitant]
  10. NEURONTIN [Concomitant]
  11. SENOKET [Concomitant]
  12. DARVOCET [Concomitant]

REACTIONS (7)
  - BLOOD CREATININE INCREASED [None]
  - BLOOD POTASSIUM INCREASED [None]
  - COMA [None]
  - DEHYDRATION [None]
  - DRUG LEVEL INCREASED [None]
  - HEART RATE DECREASED [None]
  - NODAL RHYTHM [None]
